FAERS Safety Report 11527241 (Version 2)
Quarter: 2015Q3

REPORT INFORMATION
  Report Type: Spontaneous
  Country: US (occurrence: US)
  Receive Date: 20150919
  Receipt Date: 20150923
  Transmission Date: 20151125
  Serious: No
  Sender: FDA-Public Use
  Company Number: US-009507513-1509USA009155

PATIENT
  Age: 19 Year
  Sex: Female
  Weight: 66.67 kg

DRUGS (3)
  1. NUVARING [Suspect]
     Active Substance: ETHINYL ESTRADIOL\ETONOGESTREL
     Dosage: UNKNOWN
  2. XARELTO [Concomitant]
     Active Substance: RIVAROXABAN
     Dosage: UNKNOWN
  3. NEXPLANON [Suspect]
     Active Substance: ETONOGESTREL
     Indication: CONTRACEPTION
     Dosage: UNKNOWN
     Dates: start: 20150730

REACTIONS (2)
  - Medication error [Unknown]
  - Deep vein thrombosis [Unknown]

NARRATIVE: CASE EVENT DATE: 20150814
